FAERS Safety Report 16329350 (Version 1)
Quarter: 2019Q2

REPORT INFORMATION
  Report Type: Report from Study
  Country: None (occurrence: BR)
  Receive Date: 20190520
  Receipt Date: 20190520
  Transmission Date: 20190711
  Serious: Yes (Other)
  Sender: FDA-Public Use
  Company Number: BR-ABBVIE-19K-020-2786996-00

PATIENT
  Sex: Female
  Weight: 62 kg

DRUGS (2)
  1. LOSARTAN. [Concomitant]
     Active Substance: LOSARTAN
     Indication: HYPERTENSION
  2. HUMIRA [Suspect]
     Active Substance: ADALIMUMAB
     Indication: RHEUMATOID ARTHRITIS
     Route: 058
     Dates: start: 20190126, end: 2019

REACTIONS (10)
  - Depression [Unknown]
  - Loss of personal independence in daily activities [Unknown]
  - Pain [Unknown]
  - Malaise [Unknown]
  - Crying [Unknown]
  - Insomnia [Unknown]
  - Rheumatic disorder [Not Recovered/Not Resolved]
  - Panic reaction [Unknown]
  - Decreased appetite [Unknown]
  - Asthenia [Unknown]

NARRATIVE: CASE EVENT DATE: 2019
